FAERS Safety Report 25729926 (Version 1)
Quarter: 2025Q3

REPORT INFORMATION
  Report Type: Other
  Country: EU (occurrence: EU)
  Receive Date: 20250827
  Receipt Date: 20250827
  Transmission Date: 20251021
  Serious: Yes (Death, Hospitalization, Other)
  Sender: APPCO PHARMA LLC
  Company Number: EU-Appco Pharma LLC-2183287

PATIENT
  Age: 46 Year
  Sex: Female

DRUGS (1)
  1. HYDROXYCHLOROQUINE SULFATE [Suspect]
     Active Substance: HYDROXYCHLOROQUINE SULFATE
     Indication: Rheumatoid arthritis

REACTIONS (3)
  - Hypertrophic cardiomyopathy [Not Recovered/Not Resolved]
  - Cardiogenic shock [Fatal]
  - Cardiotoxicity [Not Recovered/Not Resolved]
